FAERS Safety Report 8932579 (Version 1)
Quarter: 2012Q4

REPORT INFORMATION
  Report Type: 
  Country: US (occurrence: US)
  Receive Date: 20121128
  Receipt Date: 20121128
  Transmission Date: 20130627
  Serious: Yes (Other)
  Sender: FDA-Public Use
  Company Number: US-PFIZER INC-2012294610

PATIENT
  Age: 50 Year
  Sex: Male
  Weight: 73.92 kg

DRUGS (3)
  1. VIAGRA [Suspect]
     Indication: ERECTILE DYSFUNCTION
     Dosage: 50 mg, 3x/day
     Dates: start: 201211
  2. ABILIFY [Concomitant]
     Dosage: UNK
  3. WELLBUTRIN [Concomitant]
     Dosage: UNK

REACTIONS (3)
  - Incorrect dose administered [Not Recovered/Not Resolved]
  - Dysuria [Not Recovered/Not Resolved]
  - Erection increased [Not Recovered/Not Resolved]
